FAERS Safety Report 6570953-4 (Version None)
Quarter: 2010Q1

REPORT INFORMATION
  Report Type: 
  Country: None (occurrence: None)
  Receive Date: 20100204
  Receipt Date: 20100122
  Transmission Date: 20100710
  Serious: Yes (Other)
  Sender: FDA-Public Use
  Company Number: PHHY2010JP01950

PATIENT
  Age: 57 Year
  Sex: Female
  Weight: 59 kg

DRUGS (2)
  1. SANDOSTATIN [Suspect]
     Dosage: 200 MCG/DAY
     Route: 058
     Dates: start: 19991001
  2. SANDOSTATIN LAR [Suspect]
     Dosage: 400 MG/MONTH
     Route: 030
     Dates: start: 20040701, end: 20070701

REACTIONS (8)
  - ARTHRALGIA [None]
  - GLUCOSE TOLERANCE TEST ABNORMAL [None]
  - GLYCOSYLATED HAEMOGLOBIN INCREASED [None]
  - HEADACHE [None]
  - HYPERHIDROSIS [None]
  - MALAISE [None]
  - OEDEMA [None]
  - SEBACEOUS GLANDS OVERACTIVITY [None]
